FAERS Safety Report 5749331-3 (Version None)
Quarter: 2008Q2

REPORT INFORMATION
  Report Type: 
  Country: None (occurrence: None)
  Receive Date: 20080522
  Receipt Date: 20080522
  Transmission Date: 20081010
  Serious: No
  Sender: FDA-Public Use
  Company Number: None

PATIENT
  Age: 34 Year
  Sex: Female
  Weight: 92.9874 kg

DRUGS (1)
  1. CREST PRO-HEALTH ORAL RINSE PROCTER + GAMBLE [Suspect]
     Indication: DENTAL CARE
     Dosage: 20ML 1-2 X DAILY PO
     Route: 048
     Dates: start: 20070101, end: 20080521

REACTIONS (3)
  - DRUG INEFFECTIVE [None]
  - EMOTIONAL DISORDER [None]
  - TOOTH DISCOLOURATION [None]
